FAERS Safety Report 8888484 (Version 3)
Quarter: 2013Q1

REPORT INFORMATION
  Report Type: Spontaneous
  Country: US (occurrence: US)
  Receive Date: 20121106
  Receipt Date: 20130126
  Transmission Date: 20140127
  Serious: No
  Sender: FDA-Public Use
  Company Number: US-009507513-1210USA014645

PATIENT
  Sex: Female

DRUGS (7)
  1. VICTRELIS [Suspect]
     Dosage: 800 MG, Q8H
     Route: 048
     Dates: start: 201208
  2. PEGASYS [Suspect]
     Dosage: 180 MICROGRAM, QW
     Route: 058
  3. RIBASPHERE [Suspect]
     Dosage: 600 MG, TID
     Route: 048
  4. METFORMIN HYDROCHLORIDE [Concomitant]
     Dosage: 500 MG, BID
     Route: 048
  5. LISINOPRIL [Concomitant]
     Dosage: 40 MG, QD
     Route: 048
  6. ASPIRIN [Concomitant]
     Dosage: 81 MG, QD
     Route: 048
  7. VITAMINS (UNSPECIFIED) [Concomitant]
     Dosage: UNK, QD
     Route: 048

REACTIONS (1)
  - Sinusitis [Unknown]
